FAERS Safety Report 4983156-1 (Version None)
Quarter: 2006Q2

REPORT INFORMATION
  Report Type: 
  Country: None (occurrence: None)
  Receive Date: 20060426
  Receipt Date: 20060331
  Transmission Date: 20061013
  Serious: Yes (Life-Threatening)
  Sender: FDA-Public Use
  Company Number: 2006SE01881

PATIENT
  Age: 21170 Day
  Sex: Male
  Weight: 55 kg

DRUGS (5)
  1. BLOPRESS TABLETS 8 [Suspect]
     Indication: HYPERTENSION
     Route: 048
     Dates: start: 20060119
  2. NORVASC [Concomitant]
     Route: 048
  3. RENIVACE [Concomitant]
     Route: 048
  4. LOXONIN [Concomitant]
     Indication: ANTIPYRESIS
     Route: 048
  5. MUCOSTA [Concomitant]
     Indication: PROPHYLAXIS AGAINST GASTROINTESTINAL ULCER
     Route: 048

REACTIONS (1)
  - THROMBOCYTOPENIA [None]
